FAERS Safety Report 19887923 (Version 1)
Quarter: 2021Q3

REPORT INFORMATION
  Report Type: Spontaneous
  Country: JP (occurrence: JP)
  Receive Date: 20210928
  Receipt Date: 20210928
  Transmission Date: 20211014
  Serious: Yes (Other)
  Sender: FDA-Public Use
  Company Number: JP-PRA-000149

PATIENT
  Age: 31 Year

DRUGS (5)
  1. TOCILIZUMAB. [Suspect]
     Active Substance: TOCILIZUMAB
     Indication: CASTLEMAN^S DISEASE
     Route: 065
  2. MEROPENEM. [Suspect]
     Active Substance: MEROPENEM
     Indication: PERITONITIS BACTERIAL
     Route: 065
  3. METHYLPREDNISOLONE. [Suspect]
     Active Substance: METHYLPREDNISOLONE
     Indication: CASTLEMAN^S DISEASE
     Route: 042
  4. PREDNISOLONE. [Suspect]
     Active Substance: PREDNISOLONE
     Indication: PNEUMOCYSTIS JIROVECII PNEUMONIA
     Route: 065
  5. MEROPENEM. [Suspect]
     Active Substance: MEROPENEM
     Indication: MENINGITIS BACTERIAL
     Route: 065

REACTIONS (9)
  - Meningitis bacterial [Recovered/Resolved]
  - Pneumonia bacterial [Recovered/Resolved]
  - Coma hepatic [Unknown]
  - Oedema [Not Recovered/Not Resolved]
  - Product use in unapproved indication [Unknown]
  - Thrombocytopenia [Recovering/Resolving]
  - Peritonitis bacterial [Recovered/Resolved]
  - Pneumocystis jirovecii pneumonia [Recovered/Resolved]
  - Renal failure [Not Recovered/Not Resolved]
